FAERS Safety Report 18083797 (Version 1)
Quarter: 2020Q3

REPORT INFORMATION
  Report Type: Spontaneous
  Country: DE (occurrence: DE)
  Receive Date: 20200729
  Receipt Date: 20200729
  Transmission Date: 20201103
  Serious: Yes (Death, Hospitalization, Other)
  Sender: FDA-Public Use
  Company Number: DE-ABBVIE-20K-062-3500449-00

PATIENT
  Age: 63 Year
  Sex: Male
  Weight: 117 kg

DRUGS (2)
  1. IMBRUVICA [Suspect]
     Active Substance: IBRUTINIB
     Dosage: AB 08.11.2018 ? 20.06.2020 280MG
     Route: 048
     Dates: start: 20181108, end: 20200620
  2. IMBRUVICA [Suspect]
     Active Substance: IBRUTINIB
     Indication: WALDENSTROM^S MACROGLOBULINAEMIA
     Dosage: 21.08.2018?07.11.2018 360MG
     Route: 048
     Dates: start: 20180821, end: 20181107

REACTIONS (7)
  - Off label use [Unknown]
  - Pericardial effusion [Fatal]
  - Cardiac arrest [Unknown]
  - General physical health deterioration [Unknown]
  - Cyanosis [Unknown]
  - Incorrect dose administered [Unknown]
  - Dyspnoea exertional [Unknown]

NARRATIVE: CASE EVENT DATE: 20180821
